FAERS Safety Report 4980298-1 (Version None)
Quarter: 2006Q2

REPORT INFORMATION
  Report Type: 
  Country: None (occurrence: None)
  Receive Date: 20060424
  Receipt Date: 20060413
  Transmission Date: 20061013
  Serious: Yes (Hospitalization)
  Sender: FDA-Public Use
  Company Number: FR-ABBOTT-06P-056-0330807-00

PATIENT
  Age: 79 Year
  Sex: Female

DRUGS (9)
  1. DEPAKENE [Suspect]
     Indication: EPILEPSY
     Route: 048
     Dates: start: 20051101
  2. ROXITHROMYCIN [Suspect]
     Indication: STOMATITIS
     Route: 048
     Dates: start: 20051101
  3. LAMISCSTART [Suspect]
     Indication: EPILEPSY
     Route: 048
     Dates: start: 20051101, end: 20051129
  4. DOMPERIDONE [Suspect]
     Indication: DRUG USE FOR UNKNOWN INDICATION
     Route: 048
  5. PERINDOPRIL [Suspect]
     Indication: HYPERTENSION
     Route: 048
  6. LANSOPRAZOLE [Suspect]
     Indication: DRUG USE FOR UNKNOWN INDICATION
     Route: 048
  7. ACETYLSALICYLATE LYSINE [Concomitant]
     Indication: DRUG USE FOR UNKNOWN INDICATION
     Route: 048
  8. ZOPICLONE [Concomitant]
     Indication: DRUG USE FOR UNKNOWN INDICATION
     Route: 048
  9. LEVOTHYROXINE SODIUM [Concomitant]
     Indication: HYPOTHYROIDISM
     Route: 048

REACTIONS (6)
  - DRUG INTERACTION [None]
  - DYSPNOEA [None]
  - JOINT SPRAIN [None]
  - PYREXIA [None]
  - STOMATITIS [None]
  - TOXIC SKIN ERUPTION [None]
